FAERS Safety Report 20689141 (Version 1)
Quarter: 2022Q2

REPORT INFORMATION
  Report Type: Spontaneous
  Country: None (occurrence: CN)
  Receive Date: 20220408
  Receipt Date: 20220408
  Transmission Date: 20220721
  Serious: Yes (Other)
  Sender: FDA-Public Use
  Company Number: CN-Acacia Pharma Limited-2127513

PATIENT
  Age: 12 Month
  Sex: Male

DRUGS (7)
  1. BYFAVO [Suspect]
     Active Substance: REMIMAZOLAM BESYLATE
     Indication: Induction of anaesthesia
     Route: 042
     Dates: start: 20220317, end: 20220317
  2. DEXAMETHASONE [Suspect]
     Active Substance: DEXAMETHASONE
     Route: 042
     Dates: start: 20220317, end: 20220317
  3. FENTANYL [Suspect]
     Active Substance: FENTANYL
     Route: 042
     Dates: start: 20220317, end: 20220317
  4. FLURBIPROFEN AXETIL [Suspect]
     Active Substance: FLURBIPROFEN AXETIL
     Route: 042
     Dates: start: 20220317, end: 20220317
  5. ATRACURIUM BESYLATE [Suspect]
     Active Substance: ATRACURIUM BESYLATE
     Route: 042
     Dates: start: 20220317, end: 20220317
  6. DEXMEDETOMIDINE [Suspect]
     Active Substance: DEXMEDETOMIDINE
     Route: 042
     Dates: start: 20220317, end: 20220317
  7. TROPISETRON [Suspect]
     Active Substance: TROPISETRON
     Route: 042
     Dates: start: 20220317, end: 20220317

REACTIONS (4)
  - Rash [Recovered/Resolved]
  - Heart rate increased [Recovered/Resolved]
  - Stridor [Recovered/Resolved]
  - Off label use [Recovered/Resolved]

NARRATIVE: CASE EVENT DATE: 20220317
